FAERS Safety Report 24857741 (Version 6)
Quarter: 2025Q3

REPORT INFORMATION
  Report Type: Spontaneous
  Country: BR (occurrence: BR)
  Receive Date: 20250117
  Receipt Date: 20250718
  Transmission Date: 20251020
  Serious: No
  Sender: BIOGEN
  Company Number: BR-BIOGEN-2025BI01297158

PATIENT
  Age: 61 Year
  Sex: Female
  Weight: 58 kg

DRUGS (2)
  1. TYSABRI [Suspect]
     Active Substance: NATALIZUMAB
     Indication: Multiple sclerosis
     Route: 050
     Dates: start: 202311, end: 20250109
  2. TYSABRI [Suspect]
     Active Substance: NATALIZUMAB
     Route: 050

REACTIONS (4)
  - Multiple sclerosis [Not Recovered/Not Resolved]
  - Incorrect drug administration rate [Unknown]
  - Suspected counterfeit product [Unknown]
  - Drug ineffective [Unknown]

NARRATIVE: CASE EVENT DATE: 20241101
